FAERS Safety Report 8232321-9 (Version None)
Quarter: 2012Q1

REPORT INFORMATION
  Report Type: 
  Country: None (occurrence: None)
  Receive Date: 20120323
  Receipt Date: 20120322
  Transmission Date: 20120608
  Serious: Yes (Death, Hospitalization)
  Sender: FDA-Public Use
  Company Number: US-GLAXOSMITHKLINE-A0766642A

PATIENT
  Age: 68 Year
  Sex: Male

DRUGS (5)
  1. AVANDIA [Suspect]
     Indication: DIABETES MELLITUS
     Dosage: 8MG PER DAY
     Route: 048
     Dates: start: 20020819, end: 20040309
  2. ACIPHEX [Concomitant]
  3. LIPITOR [Concomitant]
  4. GLYBURIDE [Concomitant]
  5. ZYRTEC [Concomitant]

REACTIONS (3)
  - RENAL FAILURE [None]
  - AORTIC VALVE REPLACEMENT [None]
  - CARDIAC FAILURE CONGESTIVE [None]
